FAERS Safety Report 6594057-X (Version None)
Quarter: 2010Q1

REPORT INFORMATION
  Report Type: 
  Country: None (occurrence: None)
  Receive Date: 20100222
  Receipt Date: 20100208
  Transmission Date: 20100710
  Serious: No
  Sender: FDA-Public Use
  Company Number: US-SOLVAY-00210000869

PATIENT
  Age: 592 Month
  Sex: Female
  Weight: 86.363 kg

DRUGS (1)
  1. ANDROGEL [Suspect]
     Indication: ACCIDENTAL EXPOSURE
     Dosage: DAILY DOSE:  UNKNOWN, VIA PUMP, FREQUENCY: ONCE A DAY
     Route: 062
     Dates: start: 20080101

REACTIONS (1)
  - MENORRHAGIA [None]
